FAERS Safety Report 25880941 (Version 1)
Quarter: 2025Q4

REPORT INFORMATION
  Report Type: Spontaneous
  Country: US (occurrence: US)
  Receive Date: 20251004
  Receipt Date: 20251004
  Transmission Date: 20260118
  Serious: No
  Sender: ABBVIE
  Company Number: US-ABBVIE-6488685

PATIENT
  Age: 66 Year
  Sex: Female

DRUGS (1)
  1. RINVOQ [Suspect]
     Active Substance: UPADACITINIB
     Indication: Product used for unknown indication
     Route: 048

REACTIONS (6)
  - Norovirus infection [Recovering/Resolving]
  - Immune system disorder [Recovering/Resolving]
  - Illness [Recovering/Resolving]
  - Cough [Recovering/Resolving]
  - Respiratory tract congestion [Recovering/Resolving]
  - Secretion discharge [Recovering/Resolving]

NARRATIVE: CASE EVENT DATE: 20250923
